FAERS Safety Report 10241504 (Version 1)
Quarter: 2014Q2

REPORT INFORMATION
  Report Type: Spontaneous
  Country: US (occurrence: US)
  Receive Date: 20140617
  Receipt Date: 20140617
  Transmission Date: 20141212
  Serious: Yes (Death, Other)
  Sender: FDA-Public Use
  Company Number: US-PFIZER INC-2014163753

PATIENT
  Age: 88 Year
  Sex: Female
  Weight: 49.89 kg

DRUGS (2)
  1. LYRICA [Suspect]
     Indication: NEURALGIA
     Dosage: UNK
  2. VALIUM [Concomitant]
     Dosage: 5 MG, 3X/DAY

REACTIONS (1)
  - Cardiac failure congestive [Fatal]
